FAERS Safety Report 11648793 (Version 15)
Quarter: 2017Q3

REPORT INFORMATION
  Report Type: Report from Study
  Country: US (occurrence: US)
  Receive Date: 20151021
  Receipt Date: 20170825
  Transmission Date: 20171127
  Serious: Yes (Life-Threatening, Hospitalization, Other)
  Sender: FDA-Public Use
  Company Number: US-SA-2015SA119460

PATIENT
  Age: 53 Year
  Sex: Male

DRUGS (5)
  1. LEMTRADA [Suspect]
     Active Substance: ALEMTUZUMAB
     Indication: RELAPSING-REMITTING MULTIPLE SCLEROSIS
     Route: 041
     Dates: start: 20150720, end: 20150724
  2. LEMTRADA [Suspect]
     Active Substance: ALEMTUZUMAB
     Indication: RELAPSING-REMITTING MULTIPLE SCLEROSIS
     Route: 041
     Dates: start: 20170605, end: 20170607
  3. PREDNISONE. [Suspect]
     Active Substance: PREDNISONE
     Route: 065
  4. MORPHINE [Suspect]
     Active Substance: MORPHINE
     Route: 065
  5. PROPOFOL. [Suspect]
     Active Substance: PROPOFOL
     Route: 065

REACTIONS (61)
  - Loss of consciousness [Unknown]
  - Pneumonia [Recovered/Resolved]
  - Staphylococcal infection [Recovering/Resolving]
  - Immune system disorder [Unknown]
  - Peroneal nerve palsy [Not Recovered/Not Resolved]
  - Malaise [Unknown]
  - Ill-defined disorder [Not Recovered/Not Resolved]
  - Pulmonary oedema [Recovered/Resolved]
  - Pyrexia [Unknown]
  - Pneumonia viral [Unknown]
  - Chemical burn [Unknown]
  - Asthenia [Not Recovered/Not Resolved]
  - Rehabilitation therapy [Recovered/Resolved]
  - Peripheral swelling [Not Recovered/Not Resolved]
  - Fall [Unknown]
  - Bladder catheterisation [Unknown]
  - Multiple sclerosis relapse [Unknown]
  - Condition aggravated [Not Recovered/Not Resolved]
  - Heart rate increased [Unknown]
  - Poor venous access [Unknown]
  - Condition aggravated [Not Recovered/Not Resolved]
  - Candida infection [Not Recovered/Not Resolved]
  - Contusion [Unknown]
  - Pneumonitis [Recovering/Resolving]
  - Infusion site extravasation [Unknown]
  - Dysstasia [Not Recovered/Not Resolved]
  - Skin warm [Not Recovered/Not Resolved]
  - Fatigue [Unknown]
  - Bedridden [Not Recovered/Not Resolved]
  - Muscle atrophy [Not Recovered/Not Resolved]
  - Lung disorder [Not Recovered/Not Resolved]
  - Loss of personal independence in daily activities [Not Recovered/Not Resolved]
  - Movement disorder [Not Recovered/Not Resolved]
  - Nasopharyngitis [Unknown]
  - Chest pain [Unknown]
  - Dyspnoea [Unknown]
  - Tremor [Unknown]
  - Migraine [Not Recovered/Not Resolved]
  - Monoparesis [Not Recovered/Not Resolved]
  - Joint range of motion decreased [Not Recovered/Not Resolved]
  - Oxygen saturation decreased [Unknown]
  - Urinary tract infection [Unknown]
  - Agitation [Unknown]
  - Skin disorder [Not Recovered/Not Resolved]
  - Insomnia [Unknown]
  - Wound [Unknown]
  - Pneumonia bacterial [Not Recovered/Not Resolved]
  - Sepsis [Not Recovered/Not Resolved]
  - Productive cough [Not Recovered/Not Resolved]
  - Muscular weakness [Not Recovered/Not Resolved]
  - Confusional state [Unknown]
  - General physical health deterioration [Not Recovered/Not Resolved]
  - Pain [Unknown]
  - Therapeutic response decreased [Unknown]
  - Aspiration [Recovered/Resolved]
  - Mastication disorder [Not Recovered/Not Resolved]
  - Diarrhoea [Unknown]
  - Catheter placement [Unknown]
  - Tooth loss [Unknown]
  - Musculoskeletal disorder [Not Recovered/Not Resolved]
  - Infection [Unknown]

NARRATIVE: CASE EVENT DATE: 2015
